FAERS Safety Report 7088213-4 (Version None)
Quarter: 2010Q4

REPORT INFORMATION
  Report Type: 
  Country: None (occurrence: None)
  Receive Date: 20101108
  Receipt Date: 20100428
  Transmission Date: 20110411
  Serious: Yes (Hospitalization)
  Sender: FDA-Public Use
  Company Number: US-BAYER-201013260NA

PATIENT
  Age: 19 Year
  Sex: Female

DRUGS (8)
  1. YASMIN [Suspect]
     Indication: PRODUCT USED FOR UNKNOWN INDICATION
     Route: 048
     Dates: start: 20040101, end: 20090101
  2. CELEXA [Concomitant]
  3. ZANTAC [Concomitant]
  4. VICODIN [Concomitant]
  5. PREVACID [Concomitant]
  6. WELLBUTRIN [Concomitant]
  7. PROZAC [Concomitant]
  8. PROMETHAZINE [Concomitant]

REACTIONS (4)
  - ABDOMINAL PAIN UPPER [None]
  - CHOLECYSTITIS ACUTE [None]
  - NAUSEA [None]
  - VOMITING [None]
